FAERS Safety Report 14875324 (Version 1)
Quarter: 2018Q2

REPORT INFORMATION
  Report Type: Spontaneous
  Country: US (occurrence: US)
  Receive Date: 20180510
  Receipt Date: 20180510
  Transmission Date: 20180711
  Serious: No
  Sender: FDA-Public Use
  Company Number: US-BAYER-2018-090353

PATIENT
  Age: 23 Year
  Sex: Female
  Weight: 57 kg

DRUGS (1)
  1. CLARITIN-D 24 HOUR [Suspect]
     Active Substance: LORATADINE\PSEUDOEPHEDRINE SULFATE
     Dosage: 1 DF, QD
     Route: 048
     Dates: start: 20180507

REACTIONS (2)
  - Nightmare [Unknown]
  - Insomnia [Unknown]

NARRATIVE: CASE EVENT DATE: 20180507
